FAERS Safety Report 21169443 (Version 1)
Quarter: 2022Q3

REPORT INFORMATION
  Report Type: Report from Study
  Country: IT (occurrence: IT)
  Receive Date: 20220804
  Receipt Date: 20220804
  Transmission Date: 20221026
  Serious: Yes (Hospitalization)
  Sender: FDA-Public Use
  Company Number: None

PATIENT
  Age: 63 Year
  Sex: Female
  Weight: 55 kg

DRUGS (6)
  1. ETOPOSIDE [Suspect]
     Active Substance: ETOPOSIDE
     Indication: Follicular lymphoma
     Dosage: 79 MG SF 100 ML IV DAY , UNIT DOSE : 79 MG , FREQUENCY TIME : 1 CYCLICAL   , DURATION : 3 DAY
     Dates: start: 20220321, end: 20220324
  2. DOXORUBICIN HYDROCHLORIDE [Suspect]
     Active Substance: DOXORUBICIN HYDROCHLORIDE
     Indication: Follicular lymphoma
     Dosage: 15.80 MG IV DAY, DOXORUBICINA CLORIDRATO , DURATION : 3 DAYS
     Dates: start: 20220321, end: 20220324
  3. VINCRISTINE SULFATE [Suspect]
     Active Substance: VINCRISTINE SULFATE
     Indication: Follicular lymphoma
     Dosage: 0.63 MG 24 H IV 100 ML DAY ,VINCRISTINA SOLFATO , DURATION : 3 DAY
     Dates: start: 20220321, end: 20220324
  4. CYCLOPHOSPHAMIDE [Suspect]
     Active Substance: CYCLOPHOSPHAMIDE
     Indication: Follicular lymphoma
     Dosage: 1,185 MG 1 H FIS 500 IV 100 ML,CICLOFOSFAMIDE
     Dates: start: 20220325, end: 20220325
  5. RITUXIMAB [Suspect]
     Active Substance: RITUXIMAB
     Indication: Follicular lymphoma
     Dosage: 592.50 MG FIS. 500 ML IV, UNIT DOSE :592.5 MG  , FREQUENCY TIME :1 CYCLICAL
     Dates: start: 20220321, end: 20220321
  6. GRANISETRON [Concomitant]
     Active Substance: GRANISETRON
     Indication: Product used for unknown indication

REACTIONS (4)
  - Oral candidiasis [Recovered/Resolved]
  - Dysphagia [Recovered/Resolved]
  - Mucosal inflammation [Recovered/Resolved]
  - Asthenia [Recovered/Resolved]

NARRATIVE: CASE EVENT DATE: 20220401
